FAERS Safety Report 21445735 (Version 2)
Quarter: 2022Q4

REPORT INFORMATION
  Report Type: Spontaneous
  Country: US (occurrence: US)
  Receive Date: 20221012
  Receipt Date: 20221209
  Transmission Date: 20230112
  Serious: No
  Sender: FDA-Public Use
  Company Number: US-BAYER-2022A141145

PATIENT
  Age: 85 Year
  Sex: Male

DRUGS (7)
  1. MIRALAX [Suspect]
     Active Substance: POLYETHYLENE GLYCOL 3350
     Indication: Constipation
     Dosage: 1 DF, PRN
     Route: 048
     Dates: start: 200206
  2. TIMOLOL [Concomitant]
     Active Substance: TIMOLOL
     Indication: Prophylaxis
     Dosage: UNK UNK, BID
     Route: 047
  3. BRIMONIDINE TARTRATE [Concomitant]
     Active Substance: BRIMONIDINE TARTRATE
     Indication: Prophylaxis
     Dosage: UNK UNK, BID
     Route: 047
  4. ROCKLATAN [Concomitant]
     Active Substance: LATANOPROST\NETARSUDIL MESYLATE
     Indication: Prophylaxis
     Dosage: UNK UNK, QD
     Route: 047
  5. VALSARTAN [Concomitant]
     Active Substance: VALSARTAN
     Indication: Prophylaxis
     Dosage: 80 MG, QD
     Route: 048
     Dates: start: 2012
  6. ATORVASTATIN [Concomitant]
     Active Substance: ATORVASTATIN
     Indication: Prophylaxis
     Dosage: 5 MG, QD
     Route: 048
     Dates: start: 2012
  7. OLIGEN CONTROL COLESTEROL [Concomitant]

REACTIONS (5)
  - Discomfort [Recovered/Resolved]
  - Pain [Recovered/Resolved]
  - Diarrhoea [Recovering/Resolving]
  - Burning sensation [Recovering/Resolving]
  - Off label use [None]

NARRATIVE: CASE EVENT DATE: 20220101
